FAERS Safety Report 6735693-7 (Version None)
Quarter: 2010Q2

REPORT INFORMATION
  Report Type: 
  Country: None (occurrence: None)
  Receive Date: 20100521
  Receipt Date: 20100511
  Transmission Date: 20101027
  Serious: Yes (Other)
  Sender: FDA-Public Use
  Company Number: DE-NOVOPROD-303219

PATIENT
  Age: 71 Year
  Sex: Male
  Weight: 94 kg

DRUGS (8)
  1. VICTOZA [Suspect]
     Indication: TYPE 2 DIABETES MELLITUS
     Dosage: 0.6 MG, QD
     Route: 058
     Dates: start: 20091211
  2. VICTOZA [Suspect]
     Dosage: 1.8 MG, QD
     Route: 058
     Dates: end: 20100112
  3. METOHEXAL                          /00376902/ [Concomitant]
  4. ENAHEXAL                           /00574902/ [Concomitant]
  5. AMIODARON                          /00133101/ [Concomitant]
  6. FUROSEMID [Concomitant]
  7. MARCUMAR [Concomitant]
  8. EZETIMIBE/SIMVASTATIN [Concomitant]

REACTIONS (1)
  - PANCREATITIS ACUTE [None]
